FAERS Safety Report 26127799 (Version 1)
Quarter: 2025Q4

REPORT INFORMATION
  Report Type: Spontaneous
  Country: EU (occurrence: EU)
  Receive Date: 20251206
  Receipt Date: 20251206
  Transmission Date: 20260118
  Serious: Yes (Death, Other)
  Sender: ACCORD
  Company Number: EU-Accord-516039

PATIENT
  Age: 40 Year
  Sex: Male

DRUGS (8)
  1. CLOZAPINE [Suspect]
     Active Substance: CLOZAPINE
  2. PREGABALIN [Suspect]
     Active Substance: PREGABALIN
  3. BUPRENORPHINE [Suspect]
     Active Substance: BUPRENORPHINE
  4. METHADONE [Suspect]
     Active Substance: METHADONE HYDROCHLORIDE
  5. TRAMADOL [Suspect]
     Active Substance: TRAMADOL
  6. ALPRAZOLAM [Suspect]
     Active Substance: ALPRAZOLAM
  7. DIAZEPAM [Suspect]
     Active Substance: DIAZEPAM
  8. MIRTAZAPINE [Suspect]
     Active Substance: MIRTAZAPINE

REACTIONS (4)
  - Pulmonary oedema [Fatal]
  - Toxicity to various agents [Fatal]
  - Drug dependence [Fatal]
  - Overdose [Fatal]
